FAERS Safety Report 19469065 (Version 2)
Quarter: 2022Q2

REPORT INFORMATION
  Report Type: Spontaneous
  Country: US (occurrence: US)
  Receive Date: 20210628
  Receipt Date: 20220609
  Transmission Date: 20220721
  Serious: No
  Sender: FDA-Public Use
  Company Number: US-INTERCEPT-PM2021001409

PATIENT
  Sex: Female

DRUGS (3)
  1. OCALIVA [Suspect]
     Active Substance: OBETICHOLIC ACID
     Indication: Primary biliary cholangitis
     Dosage: 5 MILLIGRAM, QD
     Route: 048
     Dates: start: 20210204, end: 20210518
  2. OCALIVA [Suspect]
     Active Substance: OBETICHOLIC ACID
     Indication: Product use in unapproved indication
  3. URSODIOL [Concomitant]
     Active Substance: URSODIOL

REACTIONS (8)
  - Burning sensation [Unknown]
  - Paraesthesia [Unknown]
  - Diarrhoea [Unknown]
  - Dry skin [Unknown]
  - Unevaluable event [Unknown]
  - Dizziness [Unknown]
  - Pruritus [Unknown]
  - Rash pruritic [Unknown]

NARRATIVE: CASE EVENT DATE: 20210101
